FAERS Safety Report 8139074-3 (Version None)
Quarter: 2012Q1

REPORT INFORMATION
  Report Type: 
  Country: None (occurrence: None)
  Receive Date: 20120215
  Receipt Date: 20120207
  Transmission Date: 20120608
  Serious: Yes (Hospitalization)
  Sender: FDA-Public Use
  Company Number: CH-ABBOTT-11P-151-0883561-00

PATIENT
  Age: 78 Year
  Sex: Male

DRUGS (6)
  1. CLARITHROMYCIN [Suspect]
     Indication: HELICOBACTER GASTRITIS
     Route: 048
     Dates: start: 20090804, end: 20090914
  2. MARCOUMAR [Interacting]
     Indication: ATRIAL FLUTTER
     Route: 048
     Dates: start: 20090801, end: 20090921
  3. MARCOUMAR [Interacting]
     Indication: ATRIAL FIBRILLATION
     Dosage: 1 TIME
     Dates: start: 20090101, end: 20090725
  4. TENORMIN [Concomitant]
     Indication: PRODUCT USED FOR UNKNOWN INDICATION
     Dates: end: 20090801
  5. AMOXICILLIN AND CLAVULANATE POTASSIUM [Concomitant]
     Indication: HELICOBACTER GASTRITIS
     Route: 048
     Dates: start: 20090804, end: 20090914
  6. PANTOPRAZOLE [Concomitant]
     Indication: HELICOBACTER GASTRITIS
     Dates: start: 20090804

REACTIONS (4)
  - INTERNATIONAL NORMALISED RATIO INCREASED [None]
  - DYSPNOEA [None]
  - MELAENA [None]
  - LABELLED DRUG-DRUG INTERACTION MEDICATION ERROR [None]
